FAERS Safety Report 4280955-9 (Version None)
Quarter: 2004Q1

REPORT INFORMATION
  Report Type: 
  Country: None (occurrence: None)
  Receive Date: 20040127
  Receipt Date: 20040119
  Transmission Date: 20041129
  Serious: Yes (Hospitalization, Disabling)
  Sender: FDA-Public Use
  Company Number: HQ3232513JUL2001

PATIENT
  Age: 13 Year
  Sex: Female

DRUGS (5)
  1. DIMETAPP [Suspect]
     Dosage: UNKNOWN; ORAL
     Route: 048
     Dates: start: 19990915
  2. DIMETAPP [Suspect]
     Dosage: 4 TO 6 TSP, DAILY; ORAL
     Route: 048
     Dates: start: 19861201, end: 19990915
  3. ROBITUSSIN (GUAIFENESIN, SYRUP) [Suspect]
     Dosage: 4 TO 6 TSP. DAILY; ORAL
     Route: 048
     Dates: start: 19870101, end: 19990101
  4. TRIAMINIC SRT [Suspect]
     Dosage: 4 TO 6 TSP. DAILY; ORAL
     Route: 048
     Dates: start: 19910101, end: 19990101
  5. TUSSIN (DEXTROMETHORPHAN HYDROBROMIDE, ) [Suspect]
     Dosage: 4 TO 6 TSP. DAILY; ORAL
     Route: 048
     Dates: start: 19870101, end: 19990901

REACTIONS (3)
  - CAROTID ARTERY ANEURYSM [None]
  - CEREBROVASCULAR ACCIDENT [None]
  - SUBARACHNOID HAEMORRHAGE [None]
